FAERS Safety Report 9362556 (Version 1)
Quarter: 2013Q2

REPORT INFORMATION
  Report Type: Spontaneous
  Country: US (occurrence: US)
  Receive Date: 20130622
  Receipt Date: 20130622
  Transmission Date: 20140414
  Serious: Yes (Life-Threatening, Hospitalization)
  Sender: FDA-Public Use
  Company Number: US-US-EMD SERONO, INC.-7004592

PATIENT
  Age: 37 Year
  Sex: Female

DRUGS (3)
  1. REBIF [Suspect]
     Indication: MULTIPLE SCLEROSIS
     Route: 058
     Dates: start: 20091216, end: 201002
  2. REBIF [Suspect]
     Route: 058
     Dates: start: 201002, end: 20100507
  3. CYMBALTA [Concomitant]
     Indication: NERVOUS SYSTEM DISORDER

REACTIONS (6)
  - Anaphylactic reaction [Recovering/Resolving]
  - Multiple sclerosis relapse [Recovering/Resolving]
  - Tongue discolouration [Unknown]
  - Hand fracture [Unknown]
  - Asthenia [Unknown]
  - Fall [Unknown]
